FAERS Safety Report 14507323 (Version 1)
Quarter: 2018Q1

REPORT INFORMATION
  Report Type: Spontaneous
  Country: US (occurrence: US)
  Receive Date: 20180208
  Receipt Date: 20180208
  Transmission Date: 20180509
  Serious: No
  Sender: FDA-Public Use
  Company Number: US-PURDUE-USA-2017-0140522

PATIENT
  Sex: Male

DRUGS (1)
  1. BUTRANS [Suspect]
     Active Substance: BUPRENORPHINE
     Indication: PAIN
     Dosage: 20 MCG/HR, WEEKLY
     Route: 062
     Dates: start: 2016

REACTIONS (9)
  - Influenza like illness [Unknown]
  - Dry throat [Unknown]
  - Eye pain [Unknown]
  - Drug effect decreased [Not Recovered/Not Resolved]
  - Product adhesion issue [Recovering/Resolving]
  - Arthralgia [Unknown]
  - Headache [Unknown]
  - Hyperhidrosis [Not Recovered/Not Resolved]
  - Lethargy [Unknown]

NARRATIVE: CASE EVENT DATE: 2016
